FAERS Safety Report 10154677 (Version 1)
Quarter: 2014Q2

REPORT INFORMATION
  Report Type: Spontaneous
  Country: US (occurrence: US)
  Receive Date: 20140506
  Receipt Date: 20140506
  Transmission Date: 20141212
  Serious: Yes (Other)
  Sender: FDA-Public Use
  Company Number: US-ROCHE-1393556

PATIENT
  Sex: Female

DRUGS (2)
  1. KLONOPIN [Suspect]
     Indication: ANXIETY
     Route: 048
     Dates: start: 1998
  2. WELLBUTRIN [Concomitant]
     Indication: ANXIETY

REACTIONS (3)
  - Suicidal ideation [Unknown]
  - Depression [Unknown]
  - Tremor [Unknown]
